FAERS Safety Report 7580736-4 (Version None)
Quarter: 2011Q2

REPORT INFORMATION
  Report Type: 
  Country: None (occurrence: None)
  Receive Date: 20110622
  Receipt Date: 20110609
  Transmission Date: 20111010
  Serious: Yes (Other)
  Sender: FDA-Public Use
  Company Number: DSU-2011-04358

PATIENT
  Age: 57 Year
  Sex: Male

DRUGS (6)
  1. APO-ATROVASTATIN (ATROVASTATIN CACLIUM) (ATROVASTATIN CALCIUM) [Concomitant]
  2. OLMESARTAN MEDOXOMIL [Suspect]
     Indication: PRODUCT USED FOR UNKNOWN INDICATION
     Dosage: 20 MG (20 MG, QD), PER ORAL
     Route: 048
  3. CALCIUM + VITAMIN D (COLECALCIFEROL, CACLIUM) (COLECALCIFEROL, CALCIUM [Concomitant]
  4. VITALUX (ASCOBIC ACID, RIBOFLAVIN, BETACAROTENE, COPPER, ZINC, SELENIU [Concomitant]
  5. ACTONEL (RISEDRONATE SODIUM) (R-ISEDRONATE SODIUM) [Concomitant]
  6. SYNTHROID (LEVOTHYROXINE SODIUM (LEVOTHYROXINE SODIUM) [Concomitant]

REACTIONS (3)
  - ATRIAL FLUTTER [None]
  - DIZZINESS [None]
  - PALPITATIONS [None]
